FAERS Safety Report 5392342-0 (Version None)
Quarter: 2007Q3

REPORT INFORMATION
  Report Type: 
  Country: None (occurrence: None)
  Receive Date: 20070720
  Receipt Date: 20070711
  Transmission Date: 20080115
  Serious: Yes (Other)
  Sender: FDA-Public Use
  Company Number: AU-MERCK-0707AUS00147

PATIENT
  Age: 80 Year
  Sex: Female

DRUGS (8)
  1. FOSAMAX [Suspect]
     Route: 048
     Dates: start: 20020101
  2. METFORMIN HYDROCHLORIDE [Concomitant]
     Route: 065
  3. VITAMIN E [Concomitant]
     Route: 065
  4. CHROMIUM (UNSPECIFIED) [Concomitant]
     Route: 065
  5. OMEGA-3 MARINE TRIGLYCERIDES [Concomitant]
     Route: 065
  6. UBIDECARENONE [Concomitant]
     Route: 065
  7. GINKGO [Concomitant]
     Route: 065
  8. GLUCOSAMINE [Concomitant]
     Route: 065

REACTIONS (2)
  - ARTHROPATHY [None]
  - BONE DENSITY DECREASED [None]
